FAERS Safety Report 7002651-7 (Version None)
Quarter: 2010Q3

REPORT INFORMATION
  Report Type: 
  Country: None (occurrence: None)
  Receive Date: 20100920
  Receipt Date: 20100910
  Transmission Date: 20110219
  Serious: Yes (Other)
  Sender: FDA-Public Use
  Company Number: SE-PFIZER INC-2010115052

PATIENT
  Age: 67 Year
  Sex: Male

DRUGS (1)
  1. CHAMPIX [Suspect]
     Dosage: 1 MG, 2X/DAY

REACTIONS (2)
  - HYPOAESTHESIA FACIAL [None]
  - HYPOAESTHESIA ORAL [None]
